FAERS Safety Report 7952828-9 (Version None)
Quarter: 2011Q4

REPORT INFORMATION
  Report Type: 
  Country: None (occurrence: None)
  Receive Date: 20111201
  Receipt Date: 20111125
  Transmission Date: 20120403
  Serious: Yes (Hospitalization)
  Sender: FDA-Public Use
  Company Number: DE-TEVA-310854GER

PATIENT
  Age: 78 Year
  Sex: Female

DRUGS (13)
  1. TRANYLCYPROMINE SULFATE [Suspect]
     Route: 048
     Dates: start: 20110627, end: 20110630
  2. TORSEMIDE [Concomitant]
     Route: 048
     Dates: start: 20110611
  3. BISOPROLOL FUMARATE [Concomitant]
     Route: 048
     Dates: end: 20110616
  4. LEVOTHYROXINE SODIUM [Suspect]
     Route: 048
  5. TRANYLCYPROMINE SULFATE [Suspect]
     Route: 048
     Dates: start: 20110615, end: 20110616
  6. TRANYLCYPROMINE SULFATE [Suspect]
     Route: 048
     Dates: start: 20110617, end: 20110622
  7. ISOSORBIDE DINITRATE [Concomitant]
     Route: 048
  8. TRANYLCYPROMINE SULFATE [Suspect]
     Route: 048
     Dates: start: 20110613, end: 20110614
  9. TRANYLCYPROMINE SULFATE [Suspect]
     Route: 048
     Dates: start: 20110701, end: 20110701
  10. BISOPROLOL FUMARATE [Concomitant]
     Route: 048
     Dates: start: 20110617
  11. ENALAPRIL MALEATE [Concomitant]
     Route: 048
  12. TRANYLCYPROMINE SULFATE [Suspect]
     Route: 048
     Dates: start: 20110623, end: 20110626
  13. SIMVASTATIN [Concomitant]
     Route: 048

REACTIONS (11)
  - GENERAL PHYSICAL HEALTH DETERIORATION [None]
  - HYPOPHAGIA [None]
  - DELIRIUM [None]
  - BRAIN SCAN ABNORMAL [None]
  - FRACTURE [None]
  - FALL [None]
  - BLOOD PRESSURE SYSTOLIC INCREASED [None]
  - C-REACTIVE PROTEIN INCREASED [None]
  - HYPOKALAEMIA [None]
  - VASCULAR ENCEPHALOPATHY [None]
  - HYPOPERFUSION [None]
